FAERS Safety Report 6848303-5 (Version None)
Quarter: 2010Q3

REPORT INFORMATION
  Report Type: 
  Country: None (occurrence: None)
  Receive Date: 20100716
  Receipt Date: 20100707
  Transmission Date: 20110219
  Serious: Yes (Other)
  Sender: FDA-Public Use
  Company Number: US-JNJFOC-20100503106

PATIENT
  Age: 6 Year
  Sex: Female

DRUGS (4)
  1. CHILDREN'S MOTRIN [Suspect]
  2. CHILDREN'S MOTRIN [Suspect]
     Indication: MULTIPLE ALLERGIES
  3. ZYRTEC [Suspect]
     Indication: MULTIPLE ALLERGIES
  4. BENADRYL [Suspect]
     Indication: MULTIPLE ALLERGIES

REACTIONS (6)
  - ANXIETY [None]
  - COMPULSIONS [None]
  - INSOMNIA [None]
  - PHOBIA [None]
  - PRODUCT QUALITY ISSUE [None]
  - SINUSITIS [None]
